FAERS Safety Report 6966735-1 (Version None)
Quarter: 2010Q3

REPORT INFORMATION
  Report Type: 
  Country: None (occurrence: None)
  Receive Date: 20100906
  Receipt Date: 20100902
  Transmission Date: 20110219
  Serious: Yes (Other)
  Sender: FDA-Public Use
  Company Number: US-BRISTOL-MYERS SQUIBB COMPANY-15260854

PATIENT
  Age: 22 Year
  Sex: Male

DRUGS (2)
  1. CYCLOPHOSPHAMIDE [Suspect]
  2. BUSULFAN [Suspect]
     Route: 042

REACTIONS (1)
  - VENOOCCLUSIVE LIVER DISEASE [None]
